FAERS Safety Report 6226356-5 (Version None)
Quarter: 2009Q2

REPORT INFORMATION
  Report Type: 
  Country: None (occurrence: None)
  Receive Date: 20090612
  Receipt Date: 20090602
  Transmission Date: 20091009
  Serious: Yes (Other)
  Sender: FDA-Public Use
  Company Number: DE-PFIZER INC-2008071670

PATIENT
  Age: 32 Year

DRUGS (3)
  1. SOMATROPIN [Suspect]
     Indication: GROWTH HORMONE DEFICIENCY
     Dosage: 0.6 MG, 1X/DAY
     Route: 058
     Dates: start: 20030528, end: 20080806
  2. DESMOPRESSIN ACETATE [Concomitant]
     Route: 045
     Dates: start: 19930601
  3. DIANE [Concomitant]
     Dosage: 1 TABLET DAILY
     Route: 048
     Dates: start: 19970701

REACTIONS (2)
  - HAEMANGIOMA [None]
  - NEOPLASM RECURRENCE [None]
